FAERS Safety Report 5329313-6 (Version None)
Quarter: 2007Q2

REPORT INFORMATION
  Report Type: 
  Country: None (occurrence: None)
  Receive Date: 20070518
  Receipt Date: 20070508
  Transmission Date: 20071010
  Serious: Yes (Hospitalization)
  Sender: FDA-Public Use
  Company Number: AU-ABBOTT-07P-008-0365929-00

PATIENT
  Sex: Male
  Weight: 46 kg

DRUGS (14)
  1. RITONAVIR SOFT GELATIN CAPSULES [Suspect]
     Indication: HIV INFECTION
     Route: 048
     Dates: start: 20060518, end: 20070415
  2. APTIVUS [Suspect]
     Indication: HIV INFECTION
     Route: 048
     Dates: start: 20060518, end: 20070415
  3. TRUVADA [Concomitant]
     Indication: HIV INFECTION
     Route: 048
  4. NEVIRAPINE [Concomitant]
     Indication: HIV INFECTION
     Route: 048
  5. RITONAVIR [Concomitant]
     Indication: HIV INFECTION
     Route: 048
  6. BACTRIM [Concomitant]
     Indication: PROPHYLAXIS
     Route: 048
  7. PANTOPRAZOLE SODIUM [Concomitant]
     Indication: GASTROOESOPHAGEAL REFLUX DISEASE
     Route: 048
  8. FOLIC ACID [Concomitant]
     Indication: MEDICAL DIET
     Route: 048
  9. VITAMIN CAP [Concomitant]
     Indication: MEDICAL DIET
     Route: 048
  10. METHADONE HCL [Concomitant]
     Indication: NEURALGIA
     Route: 048
  11. SPIRIVA [Concomitant]
     Indication: CHRONIC OBSTRUCTIVE PULMONARY DISEASE
     Route: 055
  12. SALBUTAMOL [Concomitant]
     Indication: CHRONIC OBSTRUCTIVE PULMONARY DISEASE
     Route: 055
  13. IPRATROPIUM BROMIDE [Concomitant]
     Indication: CHRONIC OBSTRUCTIVE PULMONARY DISEASE
     Route: 055
  14. CETIRIZINE HYDROCHLORIDE [Concomitant]
     Indication: HYPERSENSITIVITY
     Route: 048

REACTIONS (7)
  - CHRONIC OBSTRUCTIVE PULMONARY DISEASE [None]
  - DIARRHOEA [None]
  - DYSPHAGIA [None]
  - END STAGE AIDS [None]
  - ENTEROCOCCAL INFECTION [None]
  - LUNG NEOPLASM [None]
  - PYREXIA [None]
